FAERS Safety Report 5626954-3 (Version None)
Quarter: 2008Q1

REPORT INFORMATION
  Report Type: 
  Country: None (occurrence: None)
  Receive Date: 20080212
  Receipt Date: 20080201
  Transmission Date: 20080703
  Serious: Yes (Hospitalization, Other)
  Sender: FDA-Public Use
  Company Number: CHNY2008IT00656

PATIENT
  Age: 90 Year
  Sex: Female

DRUGS (4)
  1. NEO-CIBALGINA (NCH)(CAFFEINE CITRATE, ACETYLSALICYLIC ACID, ACETAMINOP [Suspect]
     Indication: OSTEOARTHRITIS
     Dosage: PRN, ORAL
     Route: 048
     Dates: start: 20070101, end: 20071227
  2. NORVASC [Concomitant]
  3. IPAMIX (INDAPAMIDE) [Concomitant]
  4. PANTORC (PANTOPRAZOLE SODIUM) [Concomitant]

REACTIONS (4)
  - ANAEMIA [None]
  - DIVERTICULUM OESOPHAGEAL [None]
  - HIATUS HERNIA [None]
  - MELAENA [None]
